FAERS Safety Report 4883726-5 (Version None)
Quarter: 2006Q1

REPORT INFORMATION
  Report Type: 
  Country: None (occurrence: None)
  Receive Date: 20060113
  Receipt Date: 20051229
  Transmission Date: 20060701
  Serious: Yes (Hospitalization, Other)
  Sender: FDA-Public Use
  Company Number: US_0508120831

PATIENT
  Age: 46 Year
  Sex: Male
  Weight: 78 kg

DRUGS (10)
  1. OLANZAPINE [Suspect]
     Indication: BIPOLAR DISORDER
  2. LITHIUM CARBONATE [Concomitant]
  3. AMARYL /SWE/ (GLIMEPIRIDE) [Concomitant]
  4. LISINOPRIL [Concomitant]
  5. LOPID [Concomitant]
  6. TRAZODONE (TRAZODONE) [Concomitant]
  7. CARISOPRODOL [Concomitant]
  8. SEROQUEL [Concomitant]
  9. DEPAKOTE [Concomitant]
  10. ATENOLOL [Concomitant]

REACTIONS (2)
  - DIABETES MELLITUS [None]
  - GASTROINTESTINAL HAEMORRHAGE [None]
